FAERS Safety Report 7588770-5 (Version None)
Quarter: 2011Q3

REPORT INFORMATION
  Report Type: 
  Country: None (occurrence: None)
  Receive Date: 20110705
  Receipt Date: 20110623
  Transmission Date: 20111222
  Serious: Yes (Death, Hospitalization)
  Sender: FDA-Public Use
  Company Number: JP-JNJFOC-20091107894

PATIENT
  Sex: Female
  Weight: 57 kg

DRUGS (37)
  1. WHITE PETROLATUM [Concomitant]
     Route: 061
     Dates: start: 20091120, end: 20091120
  2. SOLITA-T3 [Concomitant]
     Route: 041
     Dates: start: 20091112, end: 20091115
  3. DECADRON [Concomitant]
     Route: 042
     Dates: start: 20091112, end: 20091112
  4. TPN [Concomitant]
     Route: 041
     Dates: start: 20091120, end: 20091121
  5. PYDOXAL [Concomitant]
     Route: 042
     Dates: start: 20091120, end: 20091120
  6. DOXORUBICIN HCL [Suspect]
     Route: 042
     Dates: start: 20090903, end: 20090903
  7. ATARAX [Concomitant]
     Route: 048
     Dates: start: 20091113, end: 20091119
  8. MORPHINE HCL ELIXIR [Concomitant]
     Indication: OVARIAN CANCER RECURRENT
     Route: 013
     Dates: start: 20091112, end: 20091112
  9. GRANISETRON [Concomitant]
     Route: 042
     Dates: start: 20090903, end: 20090903
  10. FLURBIPROFEN [Concomitant]
     Route: 042
     Dates: start: 20091114
  11. DIPHENHYDRAMINE HCL [Concomitant]
     Indication: PROPHYLAXIS
     Route: 061
     Dates: start: 20091029
  12. DOXORUBICIN HCL [Suspect]
     Indication: OVARIAN CANCER RECURRENT
     Route: 042
     Dates: start: 20091029, end: 20091029
  13. POVIDONE IODINE [Concomitant]
     Route: 049
     Dates: start: 20091113, end: 20091113
  14. WHITE PETROLATUM [Concomitant]
     Route: 061
     Dates: start: 20091118, end: 20091118
  15. ALLOPURINOL [Concomitant]
     Route: 048
     Dates: start: 20091119, end: 20091119
  16. ISOTONIC SODIUM CHLORIDE SOLUTION [Concomitant]
     Route: 041
     Dates: start: 20091114, end: 20091114
  17. MINOFIT [Concomitant]
     Route: 042
     Dates: start: 20091112, end: 20091112
  18. DECADRON [Concomitant]
     Route: 042
     Dates: start: 20091117, end: 20091118
  19. NEUTROGIN [Concomitant]
     Route: 058
     Dates: start: 20091116, end: 20091121
  20. HACHIAZULE [Concomitant]
     Route: 049
     Dates: start: 20091112, end: 20091118
  21. LACTATED RINGER'S [Concomitant]
     Route: 041
     Dates: start: 20091112, end: 20091118
  22. GRANISETRON [Concomitant]
     Indication: PROPHYLAXIS
     Route: 042
     Dates: start: 20091001, end: 20091001
  23. ALL OTHER THERAPEUTIC PRODUCT [Concomitant]
     Route: 062
     Dates: start: 20091121, end: 20091121
  24. ALL OTHER THERAPEUTIC PRODUCT [Concomitant]
     Route: 041
     Dates: start: 20091115, end: 20091115
  25. EVAMYL [Concomitant]
     Indication: PROPHYLAXIS
     Route: 048
     Dates: start: 20091112, end: 20091112
  26. DEXALTIN [Concomitant]
     Route: 049
     Dates: start: 20091112, end: 20091112
  27. FLAVITAN [Concomitant]
     Route: 065
     Dates: start: 20091121, end: 20091121
  28. DECADRON [Concomitant]
     Indication: PROPHYLAXIS
     Route: 042
     Dates: start: 20091119, end: 20091119
  29. DECADRON [Concomitant]
     Route: 042
     Dates: start: 20091120, end: 20091121
  30. MORPHINE HCL ELIXIR [Concomitant]
     Route: 042
     Dates: start: 20091120, end: 20091121
  31. SEROTONE [Concomitant]
     Indication: PROPHYLAXIS
     Route: 013
     Dates: start: 20091029, end: 20091029
  32. DOXORUBICIN HCL [Suspect]
     Route: 042
     Dates: start: 20091001, end: 20091001
  33. HACHIAZULE [Concomitant]
     Route: 049
     Dates: start: 20091118, end: 20091121
  34. NERISONA [Concomitant]
     Route: 061
     Dates: start: 20091113, end: 20091113
  35. AZUNOL [Concomitant]
     Route: 061
     Dates: start: 20091120, end: 20091121
  36. ISOTONIC SODIUM CHLORIDE SOLUTION [Concomitant]
     Route: 041
     Dates: start: 20091112, end: 20091112
  37. DECADRON [Concomitant]
     Route: 042
     Dates: start: 20091029, end: 20091029

REACTIONS (5)
  - FEBRILE NEUTROPENIA [None]
  - STEVENS-JOHNSON SYNDROME [None]
  - BONE MARROW FAILURE [None]
  - SEPSIS [None]
  - DISSEMINATED INTRAVASCULAR COAGULATION [None]
